FAERS Safety Report 17575058 (Version 6)
Quarter: 2020Q2

REPORT INFORMATION
  Report Type: Spontaneous
  Country: US (occurrence: US)
  Receive Date: 20200324
  Receipt Date: 20200514
  Transmission Date: 20200713
  Serious: Yes (Hospitalization)
  Sender: FDA-Public Use
  Company Number: US-UNITED THERAPEUTICS-UNT-2020-003952

PATIENT
  Age: 28 Year
  Sex: Female
  Weight: 78.5 kg

DRUGS (5)
  1. TYVASO [Suspect]
     Active Substance: TREPROSTINIL
     Indication: PULMONARY ARTERIAL HYPERTENSION
     Dosage: UNK
     Dates: start: 20191112
  2. TYVASO [Suspect]
     Active Substance: TREPROSTINIL
     Dosage: 18-54 ?G, QID
  3. REVATIO [Concomitant]
     Active Substance: SILDENAFIL CITRATE
     Indication: PRODUCT USED FOR UNKNOWN INDICATION
     Dosage: UNK
     Route: 065
  4. VELETRI [Suspect]
     Active Substance: EPOPROSTENOL
     Indication: PRODUCT USED FOR UNKNOWN INDICATION
     Dosage: UNK
     Route: 065
  5. TYVASO [Suspect]
     Active Substance: TREPROSTINIL
     Dosage: 60-120 ?G, QID

REACTIONS (11)
  - Dyspnoea [Unknown]
  - Injection site pain [Unknown]
  - Pain in jaw [Unknown]
  - Off label use [Unknown]
  - Application site odour [Unknown]
  - Device related infection [Unknown]
  - Nausea [Unknown]
  - Headache [Unknown]
  - Injection site erythema [Unknown]
  - Chest pain [Unknown]
  - Blood culture positive [Unknown]

NARRATIVE: CASE EVENT DATE: 20200227
